FAERS Safety Report 16210285 (Version 2)
Quarter: 2019Q3

REPORT INFORMATION
  Report Type: Spontaneous
  Country: US (occurrence: US)
  Receive Date: 20190418
  Receipt Date: 20190814
  Transmission Date: 20191004
  Serious: Yes (Other)
  Sender: FDA-Public Use
  Company Number: US-ASTRAZENECA-2019SE55642

PATIENT
  Sex: Female
  Weight: 54.9 kg

DRUGS (12)
  1. PRILOSEC [Suspect]
     Active Substance: OMEPRAZOLE MAGNESIUM
     Indication: GASTROOESOPHAGEAL REFLUX DISEASE
     Route: 048
     Dates: start: 1998, end: 2011
  2. LIDODERM [Concomitant]
     Active Substance: LIDOCAINE
  3. LISINOPRIL. [Concomitant]
     Active Substance: LISINOPRIL
  4. ADVAIR DISKUS [Concomitant]
     Active Substance: FLUTICASONE PROPIONATE\SALMETEROL XINAFOATE
  5. TRAMADOL HYDROCHLORIDE. [Concomitant]
     Active Substance: TRAMADOL HYDROCHLORIDE
  6. TRIAMTERENE HCTZ [Concomitant]
     Active Substance: HYDROCHLOROTHIAZIDE\TRIAMTERENE
  7. RANITIDINE. [Concomitant]
     Active Substance: RANITIDINE
     Dates: start: 2001, end: 2004
  8. TUMS [Concomitant]
     Active Substance: CALCIUM CARBONATE
  9. SINGULAIR [Concomitant]
     Active Substance: MONTELUKAST SODIUM
  10. VORICONAZOLE. [Concomitant]
     Active Substance: VORICONAZOLE
  11. PRILOSEC [Suspect]
     Active Substance: OMEPRAZOLE MAGNESIUM
     Indication: GASTROOESOPHAGEAL REFLUX DISEASE
     Dosage: GENERIC OMEPRAZOLE, PRESENT
     Route: 065
     Dates: start: 20101201
  12. FLUTICASONE PROP [Concomitant]
     Active Substance: FLUTICASONE PROPIONATE

REACTIONS (3)
  - Acute kidney injury [Unknown]
  - Chronic kidney disease [Not Recovered/Not Resolved]
  - Renal failure [Unknown]
